APPROVED DRUG PRODUCT: POTASSIUM CHLORIDE
Active Ingredient: POTASSIUM CHLORIDE
Strength: 15MEQ
Dosage Form/Route: TABLET, EXTENDED RELEASE;ORAL
Application: A214422 | Product #002 | TE Code: AB1
Applicant: ASCENT PHARMACEUTICALS INC
Approved: Dec 29, 2020 | RLD: No | RS: No | Type: RX